FAERS Safety Report 4343850-2 (Version None)
Quarter: 2004Q2

REPORT INFORMATION
  Report Type: 
  Country: None (occurrence: None)
  Receive Date: 20040419
  Receipt Date: 20030804
  Transmission Date: 20050107
  Serious: Yes (Hospitalization)
  Sender: FDA-Public Use
  Company Number: 2003SE03584

PATIENT
  Age: 21 Year
  Sex: Female

DRUGS (1)
  1. EMLA [Suspect]
     Indication: PAIN IN EXTREMITY
     Dates: start: 20030626, end: 20030626

REACTIONS (2)
  - ACQUIRED METHAEMOGLOBINAEMIA [None]
  - VOMITING [None]
